FAERS Safety Report 16174527 (Version 2)
Quarter: 2019Q4

REPORT INFORMATION
  Report Type: Spontaneous
  Country: CZ (occurrence: CZ)
  Receive Date: 20190409
  Receipt Date: 20191004
  Transmission Date: 20200122
  Serious: Yes (Hospitalization, Other)
  Sender: FDA-Public Use
  Company Number: CZ-SA-2019SA093518

PATIENT
  Age: 70 Year
  Sex: Female

DRUGS (13)
  1. CALCIUM FOLINATE [Suspect]
     Active Substance: LEUCOVORIN CALCIUM
     Indication: CHOLANGIOCARCINOMA
     Dosage: UNK, QCY, 8 SERIES OF FOLFOX CHEMOTHERAPY
     Route: 042
     Dates: start: 201708, end: 201801
  2. FLUOROURACIL. [Suspect]
     Active Substance: FLUOROURACIL
     Indication: CHOLANGIOCARCINOMA
     Dosage: UNK
     Dates: start: 201708
  3. OXALIPLATIN. [Suspect]
     Active Substance: OXALIPLATIN
     Indication: DISEASE PROGRESSION
  4. CARBOPLATIN. [Concomitant]
     Active Substance: CARBOPLATIN
     Indication: HEPATIC CANCER
  5. GEMCITABINE. [Concomitant]
     Active Substance: GEMCITABINE
     Indication: HEPATIC CANCER
     Dosage: 3 SERIES OF CHEMOTHERAPY CBDCA / GEMCITABINE
     Route: 042
     Dates: start: 2016
  6. OXALIPLATIN. [Suspect]
     Active Substance: OXALIPLATIN
     Indication: CHOLANGIOCARCINOMA
     Dosage: QCY, 8 SERIES OF FOLFOX CHEMOTHERAPY
     Route: 042
     Dates: start: 201708
  7. CALCIUM FOLINATE [Suspect]
     Active Substance: LEUCOVORIN CALCIUM
     Indication: HEPATIC CANCER
  8. CALCIUM FOLINATE [Suspect]
     Active Substance: LEUCOVORIN CALCIUM
     Indication: DISEASE PROGRESSION
  9. FLUOROURACIL. [Suspect]
     Active Substance: FLUOROURACIL
     Indication: DISEASE PROGRESSION
  10. OXALIPLATIN. [Suspect]
     Active Substance: OXALIPLATIN
     Indication: HEPATIC CANCER
  11. CARBOPLATIN. [Concomitant]
     Active Substance: CARBOPLATIN
     Indication: CHOLANGIOCARCINOMA
     Dosage: UNK, QCY
     Route: 042
     Dates: start: 201611
  12. FLUOROURACIL. [Suspect]
     Active Substance: FLUOROURACIL
     Indication: HEPATIC CANCER
  13. GEMCITABINE. [Concomitant]
     Active Substance: GEMCITABINE
     Indication: CHOLANGIOCARCINOMA
     Dosage: UNK, QCY
     Route: 065
     Dates: start: 2014

REACTIONS (4)
  - Paraesthesia [Unknown]
  - Oral candidiasis [Unknown]
  - Renal failure [Unknown]
  - Thrombocytopenia [Unknown]

NARRATIVE: CASE EVENT DATE: 2017
